FAERS Safety Report 7627339-0 (Version None)
Quarter: 2011Q3

REPORT INFORMATION
  Report Type: 
  Country: None (occurrence: None)
  Receive Date: 20110721
  Receipt Date: 20110711
  Transmission Date: 20111222
  Serious: Yes (Hospitalization)
  Sender: FDA-Public Use
  Company Number: US-ELI_LILLY_AND_COMPANY-US201105006487

PATIENT
  Sex: Female

DRUGS (12)
  1. MULTI-VITAMIN [Concomitant]
     Dosage: UNK, QD
  2. ALPRAZOLAM [Concomitant]
  3. QUESTRAN [Concomitant]
  4. PREDNISONE [Concomitant]
  5. LOVAZA [Concomitant]
  6. FERROUS SULFATE TAB [Concomitant]
  7. VITAMIN E [Concomitant]
  8. FORTEO [Suspect]
     Dosage: 20 UG, QD
  9. FORTEO [Suspect]
     Indication: OSTEOPOROSIS
     Dosage: 20 UG, QD
     Dates: start: 20100618
  10. CALTRATE + D                       /01204201/ [Concomitant]
  11. DIOVAN HCT [Concomitant]
  12. TRAMADOL HCL [Concomitant]

REACTIONS (3)
  - INJECTION SITE PAIN [None]
  - HIP FRACTURE [None]
  - FALL [None]
